FAERS Safety Report 17209543 (Version 1)
Quarter: 2019Q4

REPORT INFORMATION
  Report Type: Report from Study
  Country: AU (occurrence: AU)
  Receive Date: 20191227
  Receipt Date: 20191227
  Transmission Date: 20200122
  Serious: Yes (Other)
  Sender: FDA-Public Use
  Company Number: AU-JNJFOC-20191234155

PATIENT
  Age: 62 Year
  Sex: Female

DRUGS (1)
  1. REMICADE [Suspect]
     Active Substance: INFLIXIMAB
     Indication: CROHN^S DISEASE
     Route: 042
     Dates: start: 20130101, end: 20191001

REACTIONS (5)
  - Skin cancer [Unknown]
  - Macular degeneration [Unknown]
  - Gastric banding [Unknown]
  - Nipple exudate bloody [Unknown]
  - Psoriasis [Unknown]

NARRATIVE: CASE EVENT DATE: 201812
